FAERS Safety Report 8220938-7 (Version None)
Quarter: 2012Q1

REPORT INFORMATION
  Report Type: 
  Country: None (occurrence: None)
  Receive Date: 20120320
  Receipt Date: 20120309
  Transmission Date: 20120608
  Serious: Yes (Death, Hospitalization)
  Sender: FDA-Public Use
  Company Number: CA-BRISTOL-MYERS SQUIBB COMPANY-16386278

PATIENT
  Age: 73 Year
  Sex: Female
  Weight: 44 kg

DRUGS (16)
  1. DECADRON [Concomitant]
  2. LACTULOSE [Concomitant]
  3. CISPLATIN [Suspect]
     Indication: LUNG CANCER METASTATIC
     Dosage: LAST ON 18JAN12,INTER ON 25JAN12 INT:8FEB12
     Route: 042
     Dates: start: 20111222, end: 20120118
  4. ZOFRAN [Concomitant]
  5. BUDESONIDE [Concomitant]
  6. FORMOTEROL FUMARATE [Concomitant]
  7. SENNA [Concomitant]
  8. OXYCONTIN [Concomitant]
     Dates: start: 20111228
  9. ONDANSETRON [Concomitant]
     Dates: start: 20111222
  10. ATIVAN [Concomitant]
  11. ALBUTEROL [Concomitant]
  12. LANSOPRAZOLE [Concomitant]
  13. DOCUSATE [Concomitant]
  14. GEMCITABINE HYDROCHLORIDE [Suspect]
     Indication: LUNG CANCER METASTATIC
     Dosage: LAST ON 18JAN12,INTER ON 25JAN12 36DAYS.VIAL
     Route: 042
     Dates: start: 20111222, end: 20120118
  15. DEXAMETHASONE [Concomitant]
  16. METOCLOPRAMIDE [Concomitant]

REACTIONS (2)
  - ABDOMINAL PAIN [None]
  - NEOPLASM MALIGNANT [None]
